FAERS Safety Report 15723798 (Version 1)
Quarter: 2018Q4

REPORT INFORMATION
  Report Type: Spontaneous
  Country: PT (occurrence: PT)
  Receive Date: 20181214
  Receipt Date: 20181214
  Transmission Date: 20190205
  Serious: Yes (Other)
  Sender: FDA-Public Use
  Company Number: PT-BAYER-2018-232611

PATIENT
  Age: 77 Year

DRUGS (3)
  1. ULTRAVIST [Suspect]
     Active Substance: IOPROMIDE
     Indication: DIAGNOSTIC PROCEDURE
     Dosage: UNK UNK, ONCE
     Route: 042
  2. CLEMASTINE [Concomitant]
     Active Substance: CLEMASTINE
  3. HYDROCORTISONE. [Concomitant]
     Active Substance: HYDROCORTISONE

REACTIONS (1)
  - Sialoadenitis [Recovering/Resolving]

NARRATIVE: CASE EVENT DATE: 20181128
